FAERS Safety Report 6526824-2 (Version None)
Quarter: 2010Q1

REPORT INFORMATION
  Report Type: 
  Country: None (occurrence: None)
  Receive Date: 20100105
  Receipt Date: 20091221
  Transmission Date: 20100710
  Serious: No
  Sender: FDA-Public Use
  Company Number: US-B.I. PHARMACEUTICALS,INC./RIDGEFIELD-2009-BP-14611BP

PATIENT
  Age: 54 Year
  Sex: Female

DRUGS (1)
  1. MOBIC [Suspect]
     Indication: MUSCULOSKELETAL PAIN
     Dosage: 7.5 MG
     Route: 048
     Dates: start: 20091001

REACTIONS (1)
  - HYPERTENSION [None]
